FAERS Safety Report 10861733 (Version 2)
Quarter: 2015Q1

REPORT INFORMATION
  Report Type: Spontaneous
  Country: US (occurrence: US)
  Receive Date: 20150224
  Receipt Date: 20150326
  Transmission Date: 20150721
  Serious: No
  Sender: FDA-Public Use
  Company Number: US-PFIZER INC-2015064312

PATIENT
  Age: 85 Year
  Sex: Female
  Weight: 47.2 kg

DRUGS (1)
  1. DICLOFENAC SODIUM/MISOPROSTOL [Suspect]
     Active Substance: DICLOFENAC SODIUM\MISOPROSTOL
     Indication: ARTHRITIS
     Dosage: UNK, 2X/DAY

REACTIONS (1)
  - Drug ineffective [Unknown]
